FAERS Safety Report 10470910 (Version 2)
Quarter: 2014Q3

REPORT INFORMATION
  Report Type: Spontaneous
  Country: NL (occurrence: NL)
  Receive Date: 20140923
  Receipt Date: 20140923
  Transmission Date: 20150326
  Serious: Yes (Other)
  Sender: FDA-Public Use
  Company Number: PHHY2014NL118934

PATIENT
  Sex: Male
  Weight: 86 kg

DRUGS (10)
  1. NEXIUM [Concomitant]
     Active Substance: ESOMEPRAZOLE MAGNESIUM
  2. CARBASALAATCALCIUM [Concomitant]
     Active Substance: CARBASALATE
  3. NORFLOXACINE [Concomitant]
     Active Substance: NORFLOXACIN
     Dosage: 0.5 DF, UNK
  4. METOPROLOL SANDOZ [Suspect]
     Active Substance: METOPROLOL
     Dosage: 1 DF, QD
     Dates: start: 20110926, end: 20130801
  5. COZAAR [Concomitant]
     Active Substance: LOSARTAN POTASSIUM
     Dosage: 100 MG, QD
  6. TERAZOSINE [Concomitant]
     Indication: URINARY INCONTINENCE
     Dosage: 1 DF, BID
  7. HUMALOG [Concomitant]
     Active Substance: INSULIN LISPRO
  8. FENOBARBITAL [Concomitant]
     Active Substance: PHENOBARBITAL
     Dosage: ? TABLET
  9. AMLODIPINE MESILATE [Concomitant]
     Dosage: 10 MG, QD
  10. LANTUS [Concomitant]
     Active Substance: INSULIN GLARGINE

REACTIONS (8)
  - Heart rate decreased [Recovered/Resolved]
  - Mitral valve incompetence [Unknown]
  - Syncope [Recovered/Resolved]
  - Tremor [Recovered/Resolved]
  - Feeling cold [Recovered/Resolved]
  - Blood pressure decreased [Recovered/Resolved]
  - Cystitis [Unknown]
  - Dizziness [Recovered/Resolved]
